FAERS Safety Report 18049251 (Version 5)
Quarter: 2020Q4

REPORT INFORMATION
  Report Type: Spontaneous
  Country: US (occurrence: US)
  Receive Date: 20200721
  Receipt Date: 20201111
  Transmission Date: 20210113
  Serious: Yes (Other)
  Sender: FDA-Public Use
  Company Number: US-PFIZER INC-2020276473

PATIENT
  Age: 56 Year
  Sex: Female
  Weight: 125 kg

DRUGS (1)
  1. XELJANZ [Suspect]
     Active Substance: TOFACITINIB CITRATE
     Indication: RHEUMATOID ARTHRITIS
     Dosage: 5 MG, 2X/DAY
     Route: 048
     Dates: start: 201308

REACTIONS (5)
  - Neoplasm malignant [Unknown]
  - Autoimmune disorder [Unknown]
  - Asthma [Unknown]
  - Mental impairment [Unknown]
  - Malignant melanoma [Recovered/Resolved]
